FAERS Safety Report 12487635 (Version 2)
Quarter: 2016Q2

REPORT INFORMATION
  Report Type: Report from Study
  Country: US (occurrence: US)
  Receive Date: 20160622
  Receipt Date: 20160624
  Transmission Date: 20160815
  Serious: Yes (Other)
  Sender: FDA-Public Use
  Company Number: US-AMGEN-USASL2016012182

PATIENT
  Age: 77 Year
  Sex: Male

DRUGS (6)
  1. TAMSULOSIN [Concomitant]
     Active Substance: TAMSULOSIN
     Dosage: UNK
  2. BABY ASPIRIN [Concomitant]
     Active Substance: ASPIRIN
     Dosage: UNK
  3. TYLENOL [Concomitant]
     Active Substance: ACETAMINOPHEN
     Dosage: UNK
  4. LYRICA [Concomitant]
     Active Substance: PREGABALIN
     Dosage: UNK
  5. KYPROLIS [Suspect]
     Active Substance: CARFILZOMIB
     Indication: PLASMA CELL MYELOMA
     Dosage: 2 TIMES/WK
     Route: 065
     Dates: start: 20160125, end: 2016
  6. ATORVASTATIN [Concomitant]
     Active Substance: ATORVASTATIN
     Dosage: UNK

REACTIONS (7)
  - Depressed mood [Unknown]
  - Weight increased [Unknown]
  - White blood cell count abnormal [Recovering/Resolving]
  - Fatigue [Unknown]
  - Dyspnoea [Recovered/Resolved]
  - Mobility decreased [Unknown]
  - Skin neoplasm excision [Unknown]

NARRATIVE: CASE EVENT DATE: 201601
